FAERS Safety Report 22673501 (Version 3)
Quarter: 2024Q3

REPORT INFORMATION
  Report Type: Report from Study
  Country: JP (occurrence: JP)
  Receive Date: 20230705
  Receipt Date: 20240905
  Transmission Date: 20241017
  Serious: Yes (Life-Threatening, Hospitalization, Other)
  Sender: MERCK
  Company Number: JP-MSD-2306JPN004159J

PATIENT
  Age: 65 Year
  Sex: Female
  Weight: 49 kg

DRUGS (16)
  1. PEMBROLIZUMAB [Suspect]
     Active Substance: PEMBROLIZUMAB
     Indication: Uterine cancer
     Dosage: 200 MILLIGRAM, Q3W
     Route: 041
     Dates: start: 20230508, end: 20230529
  2. LENVATINIB MESYLATE [Suspect]
     Active Substance: LENVATINIB MESYLATE
     Indication: Uterine cancer
     Dosage: 20 MILLIGRAM, QD
     Route: 048
     Dates: start: 20230508, end: 20230519
  3. LENVATINIB MESYLATE [Suspect]
     Active Substance: LENVATINIB MESYLATE
     Dosage: 20 MILLIGRAM, QD
     Route: 048
     Dates: start: 20230530, end: 20230530
  4. METOCLOPRAMIDE [Concomitant]
     Active Substance: METOCLOPRAMIDE
     Dosage: UNK
     Route: 065
  5. ROSUVASTATIN CALCIUM [Concomitant]
     Active Substance: ROSUVASTATIN CALCIUM
     Dosage: UNK
     Route: 065
  6. PRANLUKAST [Concomitant]
     Active Substance: PRANLUKAST
     Dosage: UNK
     Route: 065
  7. THEOPHYLLINE [Concomitant]
     Active Substance: THEOPHYLLINE
     Dosage: UNK
     Route: 065
  8. FLUTICASONE PROPIONATE\SALMETEROL XINAFOATE [Concomitant]
     Active Substance: FLUTICASONE PROPIONATE\SALMETEROL XINAFOATE
     Dosage: UNK
  9. AZULFIDINE EN-TABS [Concomitant]
     Active Substance: SULFASALAZINE
     Dosage: UNK
     Route: 065
  10. AMLODIPINE BESYLATE [Concomitant]
     Active Substance: AMLODIPINE BESYLATE
     Indication: Hypertension
     Dosage: UNK
     Route: 065
  11. UREA [Concomitant]
     Active Substance: UREA
     Dosage: UNK
     Route: 065
  12. DERMOSOL G [Concomitant]
     Dosage: UNK
     Route: 065
  13. CLOBETASONE BUTYRATE [Concomitant]
     Active Substance: CLOBETASONE BUTYRATE
     Dosage: UNK
     Route: 065
  14. FLUOROMETHOLONE [Concomitant]
     Active Substance: FLUOROMETHOLONE
     Dosage: UNK PERCENT
     Route: 047
  15. PIRENOXINE [Concomitant]
     Active Substance: PIRENOXINE
     Dosage: UNK PERCENT
     Route: 047
  16. TRAMELAS [Concomitant]
     Dosage: UNK PERCENT
     Route: 047

REACTIONS (3)
  - Cytokine release syndrome [Recovered/Resolved]
  - Immune-mediated enterocolitis [Recovering/Resolving]
  - Acute kidney injury [Recovering/Resolving]

NARRATIVE: CASE EVENT DATE: 20230530
